FAERS Safety Report 8518326-9 (Version None)
Quarter: 2012Q3

REPORT INFORMATION
  Report Type: 
  Country: None (occurrence: None)
  Receive Date: 20120718
  Receipt Date: 20120207
  Transmission Date: 20120928
  Serious: No
  Sender: FDA-Public Use
  Company Number: US-BRISTOL-MYERS SQUIBB COMPANY-16369894

PATIENT
  Age: 47 Year
  Sex: Female

DRUGS (2)
  1. COUMADIN [Suspect]
     Indication: PULMONARY THROMBOSIS
     Dates: start: 20111208
  2. LOVENOX [Suspect]
     Indication: PULMONARY THROMBOSIS
     Dates: start: 20111208

REACTIONS (2)
  - PAIN IN EXTREMITY [None]
  - PROTHROMBIN LEVEL DECREASED [None]
